FAERS Safety Report 4382339-1 (Version None)
Quarter: 2004Q2

REPORT INFORMATION
  Report Type: 
  Country: None (occurrence: None)
  Receive Date: 20040622
  Receipt Date: 20040611
  Transmission Date: 20050107
  Serious: Yes (Hospitalization, Other)
  Sender: FDA-Public Use
  Company Number: PHBS2004CH07803

PATIENT
  Age: 70 Year
  Sex: Male

DRUGS (15)
  1. CYCLOSPORINE [Suspect]
     Indication: HEART TRANSPLANT
     Dosage: 200 MG/D
     Dates: start: 19930101
  2. COLCHICINE [Suspect]
     Indication: GOUT
     Route: 048
     Dates: start: 19960101
  3. COLCHICINE [Suspect]
     Dosage: 3 MG/DAY
     Route: 048
  4. COLCHICINE [Suspect]
     Dosage: 7 MG OVER 3 DAYS
  5. ALLOPURINOL [Concomitant]
     Dosage: 100 MG/D
     Dates: start: 20021201
  6. FUROSEMIDE [Concomitant]
     Dosage: 40 - 80 MG/D
  7. CANDESARTAN [Concomitant]
     Dosage: 8 MG/D
  8. PROPRANOLOL [Concomitant]
     Dosage: 30 MG/D
  9. ASPIRIN [Concomitant]
     Dosage: 100 MG/D
  10. OMEPRAZOLE [Concomitant]
     Dosage: 20 MG/D
  11. INSULIN [Concomitant]
     Dosage: 35 IU/D
  12. LOPERAMIDE HCL [Concomitant]
     Dosage: UNK, PRN
  13. ACETAMINOPHEN [Concomitant]
     Dosage: UNK, PRN
  14. TOLPERISONE [Concomitant]
     Dosage: UNK, PRN
  15. ZOLPIDEM [Concomitant]
     Dosage: UNK, PRN

REACTIONS (19)
  - ABDOMINAL PAIN [None]
  - ACUTE ABDOMEN [None]
  - BLOOD ALKALINE PHOSPHATASE INCREASED [None]
  - BLOOD BILIRUBIN INCREASED [None]
  - C-REACTIVE PROTEIN INCREASED [None]
  - DIARRHOEA [None]
  - GAMMA-GLUTAMYLTRANSFERASE INCREASED [None]
  - GOUT [None]
  - GOUTY ARTHRITIS [None]
  - HAEMODIALYSIS [None]
  - HEPATIC ENZYME INCREASED [None]
  - HEPATITIS CHOLESTATIC [None]
  - HYPERURICAEMIA [None]
  - JAUNDICE CHOLESTATIC [None]
  - NEPHROPATHY TOXIC [None]
  - PYREXIA [None]
  - RENAL FAILURE CHRONIC [None]
  - RENAL TRANSPLANT [None]
  - VOMITING [None]
